FAERS Safety Report 12780489 (Version 1)
Quarter: 2016Q3

REPORT INFORMATION
  Report Type: Spontaneous
  Country: US (occurrence: US)
  Receive Date: 20160926
  Receipt Date: 20160926
  Transmission Date: 20161109
  Serious: Yes (Hospitalization)
  Sender: FDA-Public Use
  Company Number: None

PATIENT
  Age: 23 Year
  Sex: Male
  Weight: 66 kg

DRUGS (2)
  1. RISPERIDONE 2 MG [Suspect]
     Active Substance: RISPERIDONE
     Dosage: 2 MG PM ORAL
     Route: 048
     Dates: start: 20160610, end: 20160705
  2. RISPERIDONE 3MG [Suspect]
     Active Substance: RISPERIDONE
     Indication: SCHIZOPHRENIA
     Route: 048
     Dates: start: 20160610, end: 20160705

REACTIONS (1)
  - Blood creatine phosphokinase increased [None]

NARRATIVE: CASE EVENT DATE: 20160628
